FAERS Safety Report 10254239 (Version 1)
Quarter: 2014Q2

REPORT INFORMATION
  Report Type: Spontaneous
  Country: BR (occurrence: BR)
  Receive Date: 20140624
  Receipt Date: 20140624
  Transmission Date: 20141212
  Serious: Yes (Hospitalization, Other)
  Sender: FDA-Public Use
  Company Number: BR-AMGEN INC.-BRASP2014046691

PATIENT
  Age: 52 Year
  Sex: Female
  Weight: 39.9 kg

DRUGS (1)
  1. ENBREL [Suspect]
     Indication: RHEUMATOID ARTHRITIS
     Dosage: 1 INJECTION PER WEEK
     Route: 065
     Dates: start: 201310, end: 201404

REACTIONS (5)
  - Tuberculin test positive [Unknown]
  - Arthritis [Unknown]
  - Gait disturbance [Unknown]
  - Pneumonia [Unknown]
  - Sinusitis [Unknown]
